FAERS Safety Report 8507183-2 (Version None)
Quarter: 2012Q3

REPORT INFORMATION
  Report Type: 
  Country: None (occurrence: None)
  Receive Date: 20120712
  Receipt Date: 20120706
  Transmission Date: 20120928
  Serious: Yes (Life-Threatening, Hospitalization, Other)
  Sender: FDA-Public Use
  Company Number: CHPA2012BR014724

PATIENT
  Sex: Female
  Weight: 54 kg

DRUGS (3)
  1. DEXTROMETHORPHAN HYDROBROMIDE [Suspect]
     Indication: COUGH
     Dosage: 2-3 FILMS, PRN
  2. CIPROFIBRATE [Concomitant]
     Indication: LIPIDS INCREASED
     Dosage: 1 DF, QD
     Route: 048
  3. TRIMEDAL [Suspect]
     Dosage: 500 MG, Q8H
     Route: 048

REACTIONS (17)
  - BREAST CANCER [None]
  - ABDOMINAL PAIN UPPER [None]
  - PLEURAL EFFUSION [None]
  - METASTASES TO SPINE [None]
  - MEMORY IMPAIRMENT [None]
  - EPIGASTRIC DISCOMFORT [None]
  - FEELING ABNORMAL [None]
  - BURNING SENSATION [None]
  - MUSCULAR WEAKNESS [None]
  - METASTASES TO LUNG [None]
  - HERPES ZOSTER [None]
  - NAUSEA [None]
  - HYPERSENSITIVITY [None]
  - BLOOD PRESSURE ABNORMAL [None]
  - OROPHARYNGEAL PAIN [None]
  - PAIN [None]
  - FEELING HOT [None]
